FAERS Safety Report 9377469 (Version 1)
Quarter: 2013Q3

REPORT INFORMATION
  Report Type: Report from Study
  Country: NZ (occurrence: NZ)
  Receive Date: 20130701
  Receipt Date: 20130701
  Transmission Date: 20140515
  Serious: Yes (Other)
  Sender: FDA-Public Use
  Company Number: NZ-PFIZER INC-2012271119

PATIENT
  Sex: Male

DRUGS (1)
  1. CHAMPIX [Suspect]
     Dosage: UNK

REACTIONS (5)
  - Diabetes mellitus [Unknown]
  - Hyperglycaemia [Unknown]
  - Polyuria [Unknown]
  - Polydipsia [Unknown]
  - Vision blurred [Unknown]
